FAERS Safety Report 6635392-6 (Version None)
Quarter: 2010Q1

REPORT INFORMATION
  Report Type: 
  Country: None (occurrence: None)
  Receive Date: 20100315
  Receipt Date: 20090428
  Transmission Date: 20100710
  Serious: Yes (Hospitalization)
  Sender: FDA-Public Use
  Company Number: US-ABBOTT-09P-163-0570513-00

PATIENT
  Sex: Female
  Weight: 81.72 kg

DRUGS (6)
  1. DEPAKOTE [Suspect]
     Indication: DEPRESSION
     Route: 048
     Dates: start: 19990227, end: 19990321
  2. DEPAKOTE [Suspect]
     Indication: SUICIDAL IDEATION
  3. DEPAKOTE [Suspect]
     Indication: SCHIZOAFFECTIVE DISORDER
  4. CLOZARIL [Suspect]
     Indication: SCHIZOAFFECTIVE DISORDER
     Dosage: TITRATED DOSING STARTING AT 25 MG QAM TO 50 MG QAM AND 100 MG QHS
     Route: 048
     Dates: start: 19990301, end: 19990321
  5. ORINASE [Concomitant]
     Indication: TYPE 2 DIABETES MELLITUS
     Route: 048
  6. PERCOCET [Concomitant]
     Indication: PAIN
     Dosage: UNKNOWN
     Route: 048

REACTIONS (18)
  - AGGRESSION [None]
  - ALBUMIN URINE [None]
  - ANAEMIA [None]
  - ANAL INJURY [None]
  - COLONIC POLYP [None]
  - DIABETES MELLITUS INADEQUATE CONTROL [None]
  - DIARRHOEA [None]
  - DIZZINESS [None]
  - DRY MOUTH [None]
  - HAEMATOCHEZIA [None]
  - HEADACHE [None]
  - HEPATIC ENZYME ABNORMAL [None]
  - INSOMNIA [None]
  - LEUKOPENIA [None]
  - LYMPHOPENIA [None]
  - MONOCYTOSIS [None]
  - NEUTROPHILIA [None]
  - PALPITATIONS [None]
